FAERS Safety Report 9808976 (Version 1)
Quarter: 2014Q1

REPORT INFORMATION
  Report Type: Report from Study
  Country: US (occurrence: US)
  Receive Date: 20140110
  Receipt Date: 20140110
  Transmission Date: 20141002
  Serious: Yes (Hospitalization, Other)
  Sender: FDA-Public Use
  Company Number: US-ABBVIE-14P-163-1186348-00

PATIENT
  Age: 59 Year
  Sex: Female

DRUGS (8)
  1. HUMIRA [Suspect]
     Indication: PSORIATIC ARTHROPATHY
     Dates: start: 20130816, end: 20131108
  2. HUMIRA [Suspect]
     Dates: start: 2011, end: 2011
  3. METFORMIN [Concomitant]
     Indication: PRODUCT USED FOR UNKNOWN INDICATION
     Dates: end: 201312
  4. SYNTHROID [Concomitant]
     Indication: HYPOTHYROIDISM
  5. MS CONTIN [Concomitant]
     Indication: ARTHRALGIA
  6. NEURONTIN [Concomitant]
     Indication: NEUROPATHY PERIPHERAL
  7. ENALAPRIL [Concomitant]
     Indication: HYPERTENSION
  8. LASIX [Concomitant]
     Indication: LOCAL SWELLING

REACTIONS (10)
  - Gait disturbance [Recovered/Resolved]
  - Dysarthria [Recovered/Resolved]
  - Blood potassium increased [Recovered/Resolved]
  - Renal failure acute [Recovered/Resolved]
  - Cardiac failure congestive [Recovered/Resolved]
  - Atrial fibrillation [Recovered/Resolved]
  - Dyspnoea [Recovered/Resolved]
  - Bronchitis [Not Recovered/Not Resolved]
  - Arthritis [Recovered/Resolved]
  - Renal impairment [Recovered/Resolved]
